FAERS Safety Report 18126522 (Version 1)
Quarter: 2020Q3

REPORT INFORMATION
  Report Type: Report from Study
  Country: BR (occurrence: BR)
  Receive Date: 20200808
  Receipt Date: 20200808
  Transmission Date: 20201103
  Serious: Yes (Life-Threatening, Hospitalization)
  Sender: FDA-Public Use
  Company Number: BR-SA-2020SA163109

PATIENT

DRUGS (14)
  1. GLUCOSE [Concomitant]
     Active Substance: DEXTROSE
     Dosage: 10 IU, PRN; GLUCOSE SERUM?REGULAR INSULIN
     Route: 042
     Dates: start: 20200623, end: 20200625
  2. RED BLOOD CELLS [Concomitant]
     Active Substance: HUMAN RED BLOOD CELL
     Dosage: DOSE: 1 BAG, 1X
     Route: 042
     Dates: start: 20200702, end: 20200702
  3. AMIODARONE [Concomitant]
     Active Substance: AMIODARONE
     Dosage: 20 GTT DROPS, BID
     Route: 050
     Dates: start: 20200625, end: 20200702
  4. NORADRENALIN [NOREPINEPHRINE] [Concomitant]
     Active Substance: NOREPINEPHRINE
     Indication: PRE-EXISTING DISEASE
     Dosage: 20 ML, PRN
     Route: 040
     Dates: start: 20200617, end: 20200630
  5. SARILUMAB [Suspect]
     Active Substance: SARILUMAB
     Indication: COVID-19
     Dosage: 1 BAG; INFUSION RATE: 100 ML/H, 1X
     Route: 042
     Dates: start: 20200617, end: 20200617
  6. GLUCOSE [Concomitant]
     Active Substance: DEXTROSE
     Dosage: 50 ML, PRN; SERUM; GLUCOSE 50%
     Route: 042
     Dates: start: 20200623, end: 20200625
  7. AMIODARONE [Concomitant]
     Active Substance: AMIODARONE
     Dosage: 20 GTT DROPS, TID
     Route: 050
     Dates: start: 20200706, end: 20200720
  8. AMIODARONE [Concomitant]
     Active Substance: AMIODARONE
     Dosage: 200 MG, BID
     Route: 048
     Dates: start: 20200703, end: 20200704
  9. AMIODARONE [Concomitant]
     Active Substance: AMIODARONE
     Dosage: 1200 MG, PRN
     Route: 042
     Dates: start: 20200705, end: 20200705
  10. DEXAMETHASONE. [Concomitant]
     Active Substance: DEXAMETHASONE
     Indication: PRE-EXISTING DISEASE
     Dosage: 6 MG, QD
     Route: 042
     Dates: start: 20200617
  11. HYDROCORTISONE. [Concomitant]
     Active Substance: HYDROCORTISONE
     Indication: SALVAGE THERAPY
     Dosage: 50 MG, QID
     Route: 042
     Dates: start: 20200706, end: 20200713
  12. HALDOL [Concomitant]
     Active Substance: HALOPERIDOL
     Dosage: 5 MG, PRN
     Route: 042
     Dates: start: 20200704, end: 20200704
  13. NORADRENALIN [NOREPINEPHRINE] [Concomitant]
     Active Substance: NOREPINEPHRINE
     Dosage: 20 ML, PRN
     Route: 040
     Dates: start: 20200702, end: 20200706
  14. TIAMIN [Concomitant]
     Dosage: 300 MG, TID
     Route: 042
     Dates: start: 20200704, end: 20200709

REACTIONS (2)
  - Bacterial infection [Recovered/Resolved]
  - Pneumonia [Recovered/Resolved]

NARRATIVE: CASE EVENT DATE: 20200622
